FAERS Safety Report 23100524 (Version 3)
Quarter: 2023Q4

REPORT INFORMATION
  Report Type: Spontaneous
  Country: US (occurrence: US)
  Receive Date: 20231024
  Receipt Date: 20231215
  Transmission Date: 20240109
  Serious: Yes (Hospitalization, Other)
  Sender: FDA-Public Use
  Company Number: US-BIOMARINAP-US-2023-153470

PATIENT

DRUGS (2)
  1. VIMIZIM [Suspect]
     Active Substance: ELOSULFASE ALFA
     Indication: Product used for unknown indication
     Dosage: 45 MILLIGRAM, QW
     Route: 042
  2. VIMIZIM [Suspect]
     Active Substance: ELOSULFASE ALFA
     Dosage: 5 MILLIGRAM
     Route: 042

REACTIONS (3)
  - Spinal decompression [Unknown]
  - Paralysis [Unknown]
  - Neck surgery [Unknown]

NARRATIVE: CASE EVENT DATE: 20230901
